FAERS Safety Report 8072621-9 (Version None)
Quarter: 2011Q4

REPORT INFORMATION
  Report Type: 
  Country: None (occurrence: None)
  Receive Date: 20111221
  Receipt Date: 20110120
  Transmission Date: 20120403
  Serious: Yes (Hospitalization)
  Sender: FDA-Public Use
  Company Number: PHHY2010US59480

PATIENT
  Age: 29 Year
  Sex: Female
  Weight: 58.3 kg

DRUGS (8)
  1. OMEPRAZOLE [Concomitant]
  2. PHENERGAN (PROMETHIAZINE HYDROCHLORIDE) [Concomitant]
  3. EXJADE [Suspect]
     Indication: SICKLE CELL ANAEMIA
     Dosage: 150 MG, QD, 1250 MG, QD, ORAL, 500 MG,  ORAL, 1250 MG, QD, ORAL, 1000 MG, QD, ORAL
     Route: 048
     Dates: start: 20100801, end: 20100801
  4. FOLIC ACID [Concomitant]
  5. HYDREA [Concomitant]
  6. LISINOPRIL [Concomitant]
  7. MS CONTIN [Concomitant]
  8. BENADRYL ^ACHE^ (AMMONIUM CHLORIDE, DIPHENHYDRAMINE HYDROCHLORIDE, MEN [Concomitant]

REACTIONS (3)
  - ABDOMINAL PAIN UPPER [None]
  - SICKLE CELL ANAEMIA WITH CRISIS [None]
  - DIARRHOEA [None]
